FAERS Safety Report 21171550 (Version 1)
Quarter: 2022Q3

REPORT INFORMATION
  Report Type: Other
  Country: US (occurrence: US)
  Receive Date: 20220804
  Receipt Date: 20220804
  Transmission Date: 20221027
  Serious: Yes (Other)
  Sender: FDA-Public Use
  Company Number: US-TOPROL-2022000231

PATIENT
  Age: 65 Year
  Sex: Female

DRUGS (2)
  1. METOPROLOL SUCCINATE [Suspect]
     Active Substance: METOPROLOL SUCCINATE
     Indication: Off label use
     Route: 065
  2. AMIODARONE [Suspect]
     Active Substance: AMIODARONE
     Indication: Cardiac arrest
     Route: 042

REACTIONS (4)
  - Electrocardiogram QT prolonged [Unknown]
  - Pneumonia [Unknown]
  - Device related infection [Unknown]
  - Off label use [Unknown]
